FAERS Safety Report 6843983-2 (Version None)
Quarter: 2010Q3

REPORT INFORMATION
  Report Type: 
  Country: None (occurrence: None)
  Receive Date: 20100714
  Receipt Date: 20100714
  Transmission Date: 20110219
  Serious: Yes (Other)
  Sender: FDA-Public Use
  Company Number: None

PATIENT
  Sex: Male
  Weight: 95.2554 kg

DRUGS (3)
  1. ZOLPIDEM TARTRATE [Suspect]
     Indication: SLEEP TERROR
     Dosage: 10 MG 1 PO
     Route: 048
  2. SEROQUEL [Suspect]
     Indication: MANIA
     Dosage: ONLY TOOK ONCE
  3. SEROQUEL [Suspect]
     Indication: SLEEP DISORDER THERAPY
     Dosage: ONLY TOOK ONCE

REACTIONS (15)
  - AMNESIA [None]
  - BURNING SENSATION [None]
  - CATATONIA [None]
  - CHILLS [None]
  - DELUSION [None]
  - DISSOCIATIVE IDENTITY DISORDER [None]
  - FEELING ABNORMAL [None]
  - FEELING DRUNK [None]
  - HALLUCINATIONS, MIXED [None]
  - INSOMNIA [None]
  - LETHARGY [None]
  - MUSCLE TIGHTNESS [None]
  - SOMNAMBULISM [None]
  - SPEECH DISORDER [None]
  - UNEVALUABLE EVENT [None]
